FAERS Safety Report 5719132-0 (Version None)
Quarter: 2008Q2

REPORT INFORMATION
  Report Type: 
  Country: None (occurrence: None)
  Receive Date: 20080428
  Receipt Date: 20080327
  Transmission Date: 20081010
  Serious: No
  Sender: FDA-Public Use
  Company Number: US-BAYER-200818318NA

PATIENT
  Sex: Female

DRUGS (1)
  1. ANGELIQ [Suspect]
     Indication: DRUG USE FOR UNKNOWN INDICATION
     Route: 048
     Dates: start: 20070901

REACTIONS (5)
  - BODY TEMPERATURE INCREASED [None]
  - BREAST SWELLING [None]
  - BREAST TENDERNESS [None]
  - FLUID RETENTION [None]
  - WEIGHT INCREASED [None]
